FAERS Safety Report 15878883 (Version 10)
Quarter: 2023Q4

REPORT INFORMATION
  Report Type: Report from Study
  Country: MX (occurrence: MX)
  Receive Date: 20190128
  Receipt Date: 20231128
  Transmission Date: 20240109
  Serious: Yes (Hospitalization)
  Sender: FDA-Public Use
  Company Number: MX-BRISTOL-MYERS SQUIBB COMPANY-BMS-2019-004524

PATIENT
  Age: 45 Year
  Sex: Female
  Weight: 66 kg

DRUGS (10)
  1. IPILIMUMAB [Suspect]
     Active Substance: IPILIMUMAB
     Indication: Renal cell carcinoma
     Dosage: 60 MILLILITER
     Dates: start: 20180618, end: 20181217
  2. LEVOTHYROXINE [Concomitant]
     Active Substance: LEVOTHYROXINE
     Indication: Adverse event
     Dosage: 100 MILLIGRAM
     Route: 048
     Dates: start: 20180829, end: 20190601
  3. BUTYLSCOPOLAMINE BROMIDE [Concomitant]
     Active Substance: BUTYLSCOPOLAMINE BROMIDE
     Indication: Adverse event
     Dosage: 40 MILLIGRAM
     Route: 048
     Dates: start: 20181024, end: 20190118
  4. RANITIDINE [Concomitant]
     Active Substance: RANITIDINE
     Indication: Adverse event
     Dosage: 300 MILLIGRAM
     Route: 048
     Dates: start: 20181111, end: 20190205
  5. CISAPRIDE [Concomitant]
     Active Substance: CISAPRIDE
     Indication: Adverse event
     Dosage: 15 MILLIGRAM
     Route: 048
     Dates: start: 20181111, end: 20190205
  6. SUCRALFATE [Concomitant]
     Active Substance: SUCRALFATE
     Indication: Adverse event
     Dosage: 3 GRAM
     Route: 048
     Dates: start: 20181110, end: 20190112
  7. SUCRALFATE [Concomitant]
     Active Substance: SUCRALFATE
     Indication: Product used for unknown indication
  8. ONDANSETRON [Concomitant]
     Active Substance: ONDANSETRON
     Indication: Adverse event
     Dosage: 3 MILLIGRAM
     Route: 048
     Dates: start: 20190103, end: 20190103
  9. ONDANSETRON [Concomitant]
     Active Substance: ONDANSETRON
     Route: 048
     Dates: start: 20190113, end: 20190410
  10. PANTOPRAZOLE [Concomitant]
     Active Substance: PANTOPRAZOLE
     Indication: Adverse event
     Route: 042
     Dates: start: 20190113, end: 20190116

REACTIONS (1)
  - Mucosal inflammation [Recovered/Resolved]

NARRATIVE: CASE EVENT DATE: 20190113
